FAERS Safety Report 7272733-3 (Version None)
Quarter: 2010Q4

REPORT INFORMATION
  Report Type: 
  Country: None (occurrence: None)
  Receive Date: 20101201
  Receipt Date: 20101102
  Transmission Date: 20110411
  Serious: Yes (Hospitalization)
  Sender: FDA-Public Use
  Company Number: 310900

PATIENT
  Age: 84 Year
  Sex: Male
  Weight: 65.8 kg

DRUGS (1)
  1. NOVOLOG [Suspect]
     Indication: TYPE 1 DIABETES MELLITUS
     Dosage: SUBCUTANEOUS
     Route: 058
     Dates: start: 20100401

REACTIONS (4)
  - AMNESIA [None]
  - BLOOD GLUCOSE FLUCTUATION [None]
  - HYPOGLYCAEMIC UNCONSCIOUSNESS [None]
  - WRONG TECHNIQUE IN DRUG USAGE PROCESS [None]
